FAERS Safety Report 6863733-3 (Version None)
Quarter: 2010Q3

REPORT INFORMATION
  Report Type: 
  Country: None (occurrence: None)
  Receive Date: 20100721
  Receipt Date: 20080306
  Transmission Date: 20110219
  Serious: No
  Sender: FDA-Public Use
  Company Number: US-PFIZER INC-2008022602

PATIENT
  Sex: Female
  Weight: 68.2 kg

DRUGS (4)
  1. CHANTIX [Suspect]
     Indication: SMOKING CESSATION THERAPY
     Route: 048
     Dates: start: 20080201, end: 20080304
  2. TRIAMTERENE [Concomitant]
  3. ESTROGENS [Concomitant]
  4. PREDNISONE [Concomitant]

REACTIONS (2)
  - ABDOMINAL DISTENSION [None]
  - ABDOMINAL PAIN [None]
